FAERS Safety Report 8911637 (Version 2)
Quarter: 2012Q4

REPORT INFORMATION
  Report Type: 
  Country: NL (occurrence: NL)
  Receive Date: 20121115
  Receipt Date: 20121128
  Transmission Date: 20130627
  Serious: Yes (Other)
  Sender: FDA-Public Use
  Company Number: NL-ROCHE-1155555

PATIENT
  Age: 37 Year
  Sex: Female

DRUGS (2)
  1. HERCEPTIN [Suspect]
     Indication: BREAST CANCER
     Route: 042
     Dates: start: 20120914
  2. PACLITAXEL [Suspect]
     Indication: BREAST CANCER
     Route: 050
     Dates: start: 20120914, end: 20121116

REACTIONS (1)
  - Dermatitis allergic [Not Recovered/Not Resolved]
